FAERS Safety Report 5491790-8 (Version None)
Quarter: 2007Q4

REPORT INFORMATION
  Report Type: 
  Country: None (occurrence: None)
  Receive Date: 20071018
  Receipt Date: 20071018
  Transmission Date: 20080405
  Serious: Yes (Life-Threatening, Hospitalization)
  Sender: FDA-Public Use
  Company Number: None

PATIENT
  Age: 66 Year
  Sex: Female
  Weight: 68.0396 kg

DRUGS (3)
  1. DEPOCYT [Suspect]
     Indication: ACUTE LYMPHOCYTIC LEUKAEMIA
     Dosage: 50 MG ONCE EVERY 2 WEEKS IT
     Route: 037
     Dates: start: 20070514, end: 20070822
  2. DEPOCYT [Suspect]
     Indication: CENTRAL NERVOUS SYSTEM LEUKAEMIA
     Dosage: 50 MG ONCE EVERY 2 WEEKS IT
     Route: 037
     Dates: start: 20070514, end: 20070822
  3. DEPOCYT [Suspect]
     Indication: LEUKAEMIA RECURRENT
     Dosage: 50 MG ONCE EVERY 2 WEEKS IT
     Route: 037
     Dates: start: 20070514, end: 20070822

REACTIONS (3)
  - HYDROCEPHALUS [None]
  - MENTAL IMPAIRMENT [None]
  - URINARY TRACT INFECTION [None]
